FAERS Safety Report 8212644-X (Version None)
Quarter: 2012Q1

REPORT INFORMATION
  Report Type: 
  Country: None (occurrence: None)
  Receive Date: 20120315
  Receipt Date: 20120307
  Transmission Date: 20120608
  Serious: Yes (Other)
  Sender: FDA-Public Use
  Company Number: US-BAYER-2011-123853

PATIENT
  Age: 42 Year
  Sex: Female
  Weight: 68.481 kg

DRUGS (7)
  1. IBUPROFEN [Concomitant]
     Indication: TENDONITIS
     Route: 048
  2. MELOXICAM [Concomitant]
     Dosage: 7.5 MG, BID
     Route: 048
  3. YASMIN [Suspect]
     Dosage: UNK
     Route: 048
     Dates: start: 20090401, end: 20091001
  4. LORAZEPAM [Concomitant]
     Dosage: 0.5 MG, BID AS NEEDEED
     Route: 048
  5. METRONIDAZOLE [Concomitant]
     Dosage: 500 MG, BID
     Route: 048
  6. BACTRIM [Concomitant]
     Dosage: 160-800 MG, BID
     Route: 048
  7. FLUTICASONE [Concomitant]
     Dosage: 50 MCG 1 SPRAY EACH NOSTRIL
     Route: 045

REACTIONS (8)
  - GENERAL PHYSICAL HEALTH DETERIORATION [None]
  - PAIN [None]
  - OEDEMA PERIPHERAL [None]
  - ANXIETY [None]
  - EMOTIONAL DISTRESS [None]
  - INJURY [None]
  - PAIN IN EXTREMITY [None]
  - DEEP VEIN THROMBOSIS [None]
